FAERS Safety Report 20794407 (Version 1)
Quarter: 2022Q2

REPORT INFORMATION
  Report Type: Spontaneous
  Country: US (occurrence: US)
  Receive Date: 20220506
  Receipt Date: 20220506
  Transmission Date: 20220721
  Serious: Yes (Hospitalization, Other)
  Sender: FDA-Public Use
  Company Number: US-CIPLA LTD.-2022US02863

PATIENT

DRUGS (1)
  1. VIGABATRIN [Suspect]
     Active Substance: VIGABATRIN
     Indication: Seizure
     Dosage: 750 MILLIGRAM, BID
     Route: 048

REACTIONS (2)
  - Unresponsive to stimuli [Unknown]
  - Seizure [Unknown]

NARRATIVE: CASE EVENT DATE: 20220401
